FAERS Safety Report 5017546-8 (Version None)
Quarter: 2006Q2

REPORT INFORMATION
  Report Type: 
  Country: None (occurrence: None)
  Receive Date: 20060525
  Receipt Date: 20060503
  Transmission Date: 20061013
  Serious: Yes (Hospitalization)
  Sender: FDA-Public Use
  Company Number: US200605000687

PATIENT
  Age: 61 Year
  Sex: Female

DRUGS (3)
  1. HUMALOG [Suspect]
  2. HUMULIN R [Suspect]
     Indication: DIABETES MELLITUS
  3. HUMULIN U [Suspect]
     Indication: DIABETES MELLITUS

REACTIONS (6)
  - HIP FRACTURE [None]
  - JOINT INJURY [None]
  - KNEE ARTHROPLASTY [None]
  - MALAISE [None]
  - NOSOCOMIAL INFECTION [None]
  - OSTEOMYELITIS [None]
